FAERS Safety Report 17815282 (Version 1)
Quarter: 2020Q2

REPORT INFORMATION
  Report Type: Spontaneous
  Country: US (occurrence: US)
  Receive Date: 20200521
  Receipt Date: 20200521
  Transmission Date: 20200714
  Serious: No
  Sender: FDA-Public Use
  Company Number: None

PATIENT
  Age: 21 Year
  Sex: Female

DRUGS (1)
  1. RAPAMUNE [Suspect]
     Active Substance: SIROLIMUS
     Dosage: ?          OTHER DOSE:1;?
     Route: 048
     Dates: start: 20200521

REACTIONS (1)
  - Off label use [None]

NARRATIVE: CASE EVENT DATE: 20200521
